FAERS Safety Report 24433236 (Version 3)
Quarter: 2024Q4

REPORT INFORMATION
  Report Type: Spontaneous
  Country: FR (occurrence: FR)
  Receive Date: 20241014
  Receipt Date: 20241106
  Transmission Date: 20250115
  Serious: Yes (Life-Threatening)
  Sender: MYLAN
  Company Number: FR-MYLANLABS-2024M1079842

PATIENT
  Age: 69 Year
  Sex: Male
  Weight: 90 kg

DRUGS (4)
  1. NOREPINEPHRINE BITARTRATE [Suspect]
     Active Substance: NOREPINEPHRINE BITARTRATE
     Indication: Procedural hypotension
     Dosage: 16 MICROGRAM PER MILLILITRE,(UNKNOWN DOSAGE)
     Route: 042
     Dates: start: 20240823, end: 20240823
  2. NOREPINEPHRINE BITARTRATE [Suspect]
     Active Substance: NOREPINEPHRINE BITARTRATE
     Dosage: 16 MICROGRAM PER MILLILITRE
     Route: 042
     Dates: start: 20240823, end: 20240823
  3. NOREPINEPHRINE BITARTRATE [Suspect]
     Active Substance: NOREPINEPHRINE BITARTRATE
     Dosage: 16 MICROGRAM PER MILLILITRE
     Route: 042
     Dates: start: 20240823, end: 20240823
  4. NOREPINEPHRINE BITARTRATE [Suspect]
     Active Substance: NOREPINEPHRINE BITARTRATE
     Dosage: 16 MICROGRAM PER MILLILITRE (EXPIRY DATE JAN-2026)
     Route: 042
     Dates: start: 20240823, end: 20240823

REACTIONS (1)
  - Drug ineffective [Recovered/Resolved]

NARRATIVE: CASE EVENT DATE: 20240823
